FAERS Safety Report 8763657 (Version 2)
Quarter: 2013Q1

REPORT INFORMATION
  Report Type: Spontaneous
  Country: US (occurrence: None)
  Receive Date: 20120827
  Receipt Date: 20130123
  Transmission Date: 20140127
  Serious: Yes (Death, Hospitalization)
  Sender: FDA-Public Use
  Company Number: TPA2012A05897

PATIENT
  Age: 56 Year
  Sex: Male

DRUGS (1)
  1. EDARBI [Suspect]

REACTIONS (4)
  - Dizziness [None]
  - Fatigue [None]
  - Heart rate decreased [None]
  - Syncope [None]
